FAERS Safety Report 13079571 (Version 3)
Quarter: 2017Q1

REPORT INFORMATION
  Report Type: Spontaneous
  Country: DK (occurrence: DK)
  Receive Date: 20170103
  Receipt Date: 20170125
  Transmission Date: 20170428
  Serious: Yes (Other)
  Sender: FDA-Public Use
  Company Number: DK-ACCORD-046986

PATIENT
  Age: 14 Year
  Sex: Male

DRUGS (2)
  1. SERTRALINE [Suspect]
     Active Substance: SERTRALINE HYDROCHLORIDE
     Indication: DEPRESSION
     Dosage: IN 2003, RECEIVED LOW DOSE 50 MG THEN INCREASED TO 100 MG IN 2014 AND LOWERED TO 50 MG ONCE AGAIN
     Dates: start: 2014, end: 2016
  2. QUETIAPINE. [Suspect]
     Active Substance: QUETIAPINE
     Indication: INSOMNIA
     Dosage: 25 MG IN EVENING
     Dates: start: 2015

REACTIONS (29)
  - Nervous system disorder [Unknown]
  - Hyperlipidaemia [Unknown]
  - Musculoskeletal disorder [Unknown]
  - Insomnia [Unknown]
  - Asthenia [Unknown]
  - Apathy [Unknown]
  - Derealisation [Unknown]
  - Language disorder [Unknown]
  - Thinking abnormal [Unknown]
  - Rapid eye movements sleep abnormal [Unknown]
  - Fall [Unknown]
  - Dissociative identity disorder [Unknown]
  - Hypercholesterolaemia [Unknown]
  - Brain injury [Unknown]
  - Somnolence [Unknown]
  - Memory impairment [Not Recovered/Not Resolved]
  - Cotard^s syndrome [Unknown]
  - Learning disorder [Unknown]
  - Headache [Unknown]
  - Dizziness [Unknown]
  - Suicide attempt [Unknown]
  - Aggression [Unknown]
  - Facial bones fracture [Unknown]
  - Anaemia [Unknown]
  - Fear of death [Unknown]
  - Depression [Unknown]
  - Sleep disorder [Unknown]
  - Anxiety [Unknown]
  - Stress [Unknown]

NARRATIVE: CASE EVENT DATE: 2015
